FAERS Safety Report 9820465 (Version 1)
Quarter: 2014Q1

REPORT INFORMATION
  Report Type: Spontaneous
  Country: ES (occurrence: None)
  Receive Date: 20140114
  Receipt Date: 20140114
  Transmission Date: 20141002
  Serious: Yes (Other)
  Sender: FDA-Public Use
  Company Number: 2013P1022417

PATIENT
  Sex: 0

DRUGS (1)
  1. CHLOROQUINE [Suspect]

REACTIONS (2)
  - Retinal toxicity [None]
  - Corneal deposits [None]
